FAERS Safety Report 7402151-6 (Version None)
Quarter: 2011Q2

REPORT INFORMATION
  Report Type: 
  Country: None (occurrence: None)
  Receive Date: 20110408
  Receipt Date: 20110331
  Transmission Date: 20111010
  Serious: Yes (Death)
  Sender: FDA-Public Use
  Company Number: FR-JNJFOC-20110312513

PATIENT
  Sex: Female

DRUGS (5)
  1. TOPIRAMATE [Suspect]
     Indication: MYOCLONIC EPILEPSY
     Route: 048
  2. MICROPAKINE [Suspect]
     Indication: MYOCLONIC EPILEPSY
     Route: 048
  3. ZARONTIN [Suspect]
     Indication: ENCEPHALOPATHY
     Route: 048
  4. DIACOMIT [Suspect]
     Indication: ENCEPHALOPATHY
     Route: 048
  5. RIVOTRIL [Suspect]
     Indication: MYOCLONIC EPILEPSY
     Route: 048

REACTIONS (5)
  - RHABDOMYOLYSIS [None]
  - RENAL FAILURE ACUTE [None]
  - HYPERTHERMIA [None]
  - ACUTE HEPATIC FAILURE [None]
  - STATUS EPILEPTICUS [None]
